FAERS Safety Report 4655755-8 (Version None)
Quarter: 2005Q2

REPORT INFORMATION
  Report Type: 
  Country: None (occurrence: None)
  Receive Date: 20050507
  Receipt Date: 20050117
  Transmission Date: 20051028
  Serious: Yes (Hospitalization)
  Sender: FDA-Public Use
  Company Number: US-MERCK-0501USA02885

PATIENT
  Age: 48 Year
  Sex: Male
  Weight: 73 kg

DRUGS (7)
  1. VIOXX [Suspect]
     Indication: ARTHRITIS
     Route: 048
     Dates: start: 20000712, end: 20010528
  2. VIOXX [Suspect]
     Route: 048
     Dates: start: 20010529, end: 20010624
  3. OXYCONTIN [Concomitant]
     Route: 065
  4. KLONOPIN [Concomitant]
     Route: 065
  5. ISONIAZID [Concomitant]
     Route: 065
  6. PYRIDOXINE [Concomitant]
     Route: 065
  7. EFFEXOR [Concomitant]
     Route: 065

REACTIONS (15)
  - ANGINA UNSTABLE [None]
  - BLOOD CHOLESTEROL INCREASED [None]
  - CORONARY ARTERY DISEASE [None]
  - DEPRESSION [None]
  - DIVERTICULUM INTESTINAL [None]
  - ERECTILE DYSFUNCTION [None]
  - GASTRIC DISORDER [None]
  - HYPERTENSION [None]
  - MEMORY IMPAIRMENT [None]
  - MITRAL VALVE INCOMPETENCE [None]
  - MYOCARDIAL INFARCTION [None]
  - OEDEMA PERIPHERAL [None]
  - PAIN IN EXTREMITY [None]
  - PULMONARY VALVE INCOMPETENCE [None]
  - TRICUSPID VALVE INCOMPETENCE [None]
